FAERS Safety Report 15956731 (Version 1)
Quarter: 2019Q1

REPORT INFORMATION
  Report Type: Spontaneous
  Country: US (occurrence: US)
  Receive Date: 20190213
  Receipt Date: 20190213
  Transmission Date: 20190417
  Serious: No
  Sender: FDA-Public Use
  Company Number: NXG-15-028

PATIENT
  Age: 34 Year
  Sex: Female

DRUGS (3)
  1. OXYCODONE [Concomitant]
     Active Substance: OXYCODONE
     Route: 048
  2. CALCIUM CARBONATE WITH VITAMIN D (CHOLECALCIFEROL) [Concomitant]
     Active Substance: CALCIUM CARBONATE\CHOLECALCIFEROL
  3. CHENODAL [Suspect]
     Active Substance: CHENODIOL
     Indication: XANTHOMATOSIS
     Route: 048
     Dates: start: 2013

REACTIONS (2)
  - Drug ineffective [Unknown]
  - Liver function test increased [Unknown]
